FAERS Safety Report 8274553-X (Version None)
Quarter: 2012Q2

REPORT INFORMATION
  Report Type: 
  Country: None (occurrence: None)
  Receive Date: 20120411
  Receipt Date: 20120402
  Transmission Date: 20120825
  Serious: Yes (Other)
  Sender: FDA-Public Use
  Company Number: US-BAYER-2012-032347

PATIENT
  Age: 70 Year
  Sex: Female
  Weight: 77.098 kg

DRUGS (2)
  1. ALEVE (CAPLET) [Suspect]
     Indication: ARTHRITIS
     Dosage: 2 DF, PRN, BOTTLE COUNT 200S
     Route: 048
     Dates: start: 20120305
  2. METOPROLOL SUCCINATE [Suspect]
     Dosage: UNK U, UNK

REACTIONS (1)
  - DYSPNOEA [None]
